FAERS Safety Report 6060614-2 (Version None)
Quarter: 2009Q1

REPORT INFORMATION
  Report Type: 
  Country: None (occurrence: None)
  Receive Date: 20090129
  Receipt Date: 20090129
  Transmission Date: 20090719
  Serious: No
  Sender: FDA-Public Use
  Company Number: None

PATIENT
  Sex: Female
  Weight: 42.6381 kg

DRUGS (3)
  1. SOTALOL HCL [Suspect]
     Indication: HEART RATE INCREASED
     Dosage: 120 MG 1/2 TABLET TWICE DAY FROM PHARMACY
     Dates: start: 20060101
  2. WARFARIN SODIUM [Suspect]
     Indication: HEART RATE INCREASED
     Dosage: 5 MG 1 PILL PER DAY
     Dates: start: 20060101
  3. WARFARIN SODIUM [Suspect]
     Indication: LOSS OF CONSCIOUSNESS
     Dosage: 5 MG 1 PILL PER DAY
     Dates: start: 20060101

REACTIONS (4)
  - FEELING ABNORMAL [None]
  - GRIP STRENGTH DECREASED [None]
  - HYPERHIDROSIS [None]
  - WEIGHT DECREASED [None]
